FAERS Safety Report 10599643 (Version 1)
Quarter: 2014Q4

REPORT INFORMATION
  Report Type: Spontaneous
  Country: KZ (occurrence: KZ)
  Receive Date: 20141121
  Receipt Date: 20141121
  Transmission Date: 20150529
  Serious: Yes (Other)
  Sender: FDA-Public Use
  Company Number: PHHY2014KZ150415

PATIENT
  Sex: Female

DRUGS (4)
  1. NEBILET [Concomitant]
     Active Substance: NEBIVOLOL
     Indication: LEFT VENTRICULAR DYSFUNCTION
  2. NEBILET [Concomitant]
     Active Substance: NEBIVOLOL
     Indication: HYPERTENSION
     Dosage: 5 MG
     Route: 048
  3. EXFORGE [Suspect]
     Active Substance: AMLODIPINE BESYLATE\VALSARTAN
     Indication: HYPERTENSION
     Dosage: 1 DF (5 MG AMLO AND 160 MG VAL) BID
     Route: 048
  4. NEBILET [Concomitant]
     Active Substance: NEBIVOLOL
     Indication: CARDIAC FAILURE

REACTIONS (7)
  - Tachycardia [Recovered/Resolved]
  - Cardiac failure chronic [Unknown]
  - Myocardial ischaemia [Unknown]
  - Hypertension [Unknown]
  - Malaise [Recovered/Resolved]
  - Atrial fibrillation [Unknown]
  - Dyspnoea [Recovered/Resolved]
